FAERS Safety Report 4615326-6 (Version None)
Quarter: 2005Q1

REPORT INFORMATION
  Report Type: 
  Country: None (occurrence: None)
  Receive Date: 20050317
  Receipt Date: 20050309
  Transmission Date: 20050727
  Serious: Yes (Hospitalization)
  Sender: FDA-Public Use
  Company Number: MEDI-0003016

PATIENT
  Age: 4 Month
  Sex: Male

DRUGS (1)
  1. SYNAGIS [Suspect]
     Indication: ANTIVIRAL PROPHYLAXIS
     Dosage: 70 MG, 1 IN 30 D, INTRAMUSCULAR
     Route: 030
     Dates: start: 20050209, end: 20050209

REACTIONS (2)
  - CONVULSION [None]
  - SUBDURAL HAEMORRHAGE [None]
